FAERS Safety Report 6337199-6 (Version None)
Quarter: 2009Q3

REPORT INFORMATION
  Report Type: 
  Country: None (occurrence: None)
  Receive Date: 20090902
  Receipt Date: 20090831
  Transmission Date: 20100115
  Serious: Yes (Other)
  Sender: FDA-Public Use
  Company Number: US-RB-009360-09

PATIENT
  Sex: Female

DRUGS (1)
  1. SUBUTEX [Suspect]
     Route: 060
     Dates: start: 20080901

REACTIONS (2)
  - DRUG EXPOSURE DURING PREGNANCY [None]
  - SELECTIVE ABORTION [None]
